FAERS Safety Report 8776290 (Version 1)
Quarter: 2012Q4

REPORT INFORMATION
  Report Type: 
  Country: US (occurrence: US)
  Receive Date: 20120910
  Receipt Date: 20120910
  Transmission Date: 20130627
  Serious: No
  Sender: FDA-Public Use
  Company Number: US-BAYER-2012-092897

PATIENT
  Age: 71 Year
  Sex: Female
  Weight: 73 kg

DRUGS (2)
  1. ALEVE CAPLET/TABLET,MIDOL EXTENDED RELIEF CAPLET [Suspect]
     Indication: ANTIINFLAMMATORY THERAPY
     Dosage: UNK
     Route: 048
  2. ONE A DAY WOMEN^S ACTIVE MIND AND BODY [Suspect]
     Dosage: 0.5 DF, UNK
     Route: 048
     Dates: start: 201207, end: 201208

REACTIONS (1)
  - Feeling jittery [Recovered/Resolved]
